FAERS Safety Report 8603178-9 (Version None)
Quarter: 2012Q3

REPORT INFORMATION
  Report Type: 
  Country: None (occurrence: None)
  Receive Date: 20120817
  Receipt Date: 20120806
  Transmission Date: 20120928
  Serious: Yes (Hospitalization)
  Sender: FDA-Public Use
  Company Number: FR-B.I. PHARMACEUTICALS,INC./RIDGEFIELD-2012-FF-00787FF

PATIENT
  Sex: Female
  Weight: 50 kg

DRUGS (9)
  1. TRAMADOL HCL [Concomitant]
     Route: 048
  2. MOBIC [Suspect]
     Indication: BACK PAIN
  3. PIROXICAM [Suspect]
  4. SULFASALAZINE [Suspect]
     Indication: ANKYLOSING SPONDYLITIS
  5. NAPROSYN [Suspect]
     Dosage: 1000 MG
  6. ENBREL [Suspect]
     Indication: ANKYLOSING SPONDYLITIS
  7. MOBIC [Suspect]
     Indication: SCIATICA
     Dosage: 15 MG
     Route: 048
     Dates: start: 20110828, end: 20110906
  8. NAPROSYN [Suspect]
  9. CORTICOSTEROIDS [Suspect]
     Indication: ANKYLOSING SPONDYLITIS

REACTIONS (14)
  - LUNG INFECTION [None]
  - ABDOMINAL PAIN [None]
  - ABDOMINAL DISCOMFORT [None]
  - DYSPNOEA [None]
  - WEIGHT DECREASED [None]
  - ABDOMINAL PAIN UPPER [None]
  - DIARRHOEA [None]
  - TOOTH DISORDER [None]
  - FATIGUE [None]
  - INJECTION SITE PRURITUS [None]
  - INJECTION SITE ERYTHEMA [None]
  - PERICARDIAL EFFUSION [None]
  - DYSPEPSIA [None]
  - GASTROINTESTINAL PAIN [None]
